FAERS Safety Report 9729980 (Version 1)
Quarter: 2013Q4

REPORT INFORMATION
  Report Type: Spontaneous
  Country: MX (occurrence: MX)
  Receive Date: 20131204
  Receipt Date: 20131204
  Transmission Date: 20140711
  Serious: Yes (Other)
  Sender: FDA-Public Use
  Company Number: PHHY2013MX141225

PATIENT
  Age: 83 Year
  Sex: Female

DRUGS (1)
  1. CO-DIOVAN [Suspect]
     Indication: HYPERTENSION
     Dosage: 0.5 DF (160/12.5 MG), DAILY
     Route: 048
     Dates: start: 2011

REACTIONS (3)
  - Dementia Alzheimer^s type [Not Recovered/Not Resolved]
  - Incontinence [Not Recovered/Not Resolved]
  - Wrong technique in drug usage process [Not Recovered/Not Resolved]
